FAERS Safety Report 6961761-0 (Version None)
Quarter: 2010Q3

REPORT INFORMATION
  Report Type: 
  Country: None (occurrence: None)
  Receive Date: 20100901
  Receipt Date: 20100809
  Transmission Date: 20110219
  Serious: Yes (Hospitalization)
  Sender: FDA-Public Use
  Company Number: FR-ROCHE-713741

PATIENT
  Sex: Female
  Weight: 70 kg

DRUGS (6)
  1. PEGINTERFERON ALFA-2A [Suspect]
     Indication: HEPATITIS C
     Route: 058
     Dates: start: 20100111
  2. RIBAVIRIN [Suspect]
     Indication: HEPATITIS C
     Dosage: START TIME: 9:55
     Route: 048
     Dates: start: 20100111
  3. BLINDED TMC435 [Suspect]
     Indication: HEPATITIS C
     Dosage: DRUG INTERRUPTED, DOSE:BLINDED, START TIME: 9:55
     Route: 048
     Dates: start: 20100111
  4. ACETAMINOPHEN [Concomitant]
     Indication: PAIN
  5. DEXERYL [Concomitant]
     Indication: DRY SKIN PROPHYLAXIS
     Route: 003
     Dates: start: 20100111
  6. HEXAQUINE [Concomitant]
     Route: 048
     Dates: start: 20100504

REACTIONS (8)
  - ANAEMIA [None]
  - ASTHENIA [None]
  - FEBRILE NEUTROPENIA [None]
  - LOSS OF CONSCIOUSNESS [None]
  - LUNG DISORDER [None]
  - NEUTROPENIA [None]
  - SYNCOPE [None]
  - THROMBOCYTOPENIA [None]
